FAERS Safety Report 4530655-2 (Version None)
Quarter: 2004Q4

REPORT INFORMATION
  Report Type: 
  Country: None (occurrence: None)
  Receive Date: 20041216
  Receipt Date: 20041206
  Transmission Date: 20050328
  Serious: Yes (Disabling)
  Sender: FDA-Public Use
  Company Number: 2004-12-0031

PATIENT
  Sex: Male

DRUGS (1)
  1. GENTAMICIN [Suspect]
     Indication: ENDOCARDITIS
     Dates: start: 20030806, end: 20030901

REACTIONS (2)
  - BALANCE DISORDER [None]
  - DIZZINESS [None]
